FAERS Safety Report 4717178-2 (Version None)
Quarter: 2005Q3

REPORT INFORMATION
  Report Type: 
  Country: None (occurrence: None)
  Receive Date: 20050712
  Receipt Date: 20040511
  Transmission Date: 20060218
  Serious: Yes (Hospitalization)
  Sender: FDA-Public Use
  Company Number: PHEH2004US05171

PATIENT
  Sex: Female

DRUGS (3)
  1. GLEEVEC [Suspect]
     Indication: LEUKAEMIA
     Dosage: 400 MG, QD; SEE IMAGE
     Dates: start: 20030901
  2. GLEEVEC [Suspect]
     Indication: LEUKAEMIA
     Dosage: 400 MG, QD; SEE IMAGE
     Dates: start: 20030901
  3. GLEEVEC [Suspect]
     Indication: LEUKAEMIA
     Dosage: 400 MG, QD; SEE IMAGE
     Dates: start: 20031001

REACTIONS (8)
  - DRUG INTOLERANCE [None]
  - DYSPHAGIA [None]
  - DYSPHONIA [None]
  - FATIGUE [None]
  - FULL BLOOD COUNT DECREASED [None]
  - HYPOAESTHESIA [None]
  - OESOPHAGEAL STENOSIS [None]
  - THROAT IRRITATION [None]
